FAERS Safety Report 21353611 (Version 1)
Quarter: 2022Q3

REPORT INFORMATION
  Report Type: Spontaneous
  Country: RU (occurrence: RU)
  Receive Date: 20220920
  Receipt Date: 20220920
  Transmission Date: 20221026
  Serious: Yes (Other)
  Sender: FDA-Public Use
  Company Number: RU-NOVARTISPH-NVSC2022RU209981

PATIENT
  Age: 79 Year

DRUGS (2)
  1. IMATINIB [Suspect]
     Active Substance: IMATINIB
     Indication: Chronic myeloid leukaemia
     Dosage: UNK
     Route: 065
  2. IMATINIB [Suspect]
     Active Substance: IMATINIB
     Dosage: 200 MG (REDUCED DOSE OF 200 MG WAS RESUMED)
     Route: 065

REACTIONS (2)
  - Arthralgia [Recovered/Resolved]
  - Withdrawal syndrome [Recovered/Resolved]
